FAERS Safety Report 7134026-4 (Version None)
Quarter: 2010Q4

REPORT INFORMATION
  Report Type: 
  Country: None (occurrence: None)
  Receive Date: 20101117
  Receipt Date: 20101111
  Transmission Date: 20110411
  Serious: Yes (Death)
  Sender: FDA-Public Use
  Company Number: 2010IP000144

PATIENT
  Age: 76 Year
  Sex: Female

DRUGS (5)
  1. BRONUCK OPHTHALMIC SOLUTION (BROMFENAC OPHTHALMIC SOLUTION 0.1%) (BROM [Suspect]
     Indication: CATARACT OPERATION COMPLICATION
     Dosage: 1 GTT; BID; OPH
     Route: 047
     Dates: start: 20100614, end: 20100725
  2. LUMIGAN [Suspect]
     Indication: NORMAL TENSION GLAUCOMA
     Dosage: 1 GTT; QD; OPH
     Route: 047
     Dates: start: 20100611, end: 20100725
  3. VIGAMOX [Suspect]
     Indication: CATARACT OPERATION COMPLICATION
     Dosage: 1 GTT; QID;OPH
     Route: 047
     Dates: start: 20100614, end: 20100725
  4. RINDERON (BETAMETHASONE SODIUM PHOSPHATE) (NO PREF. NAME) [Suspect]
     Indication: CATARACT OPERATION COMPLICATION
     Dosage: 1 GTT; QID; OPH
     Route: 047
     Dates: start: 20100614, end: 20100725
  5. FLOMOX (CEFCAPENE PIVOXIL HYDROCHLORIDE HYDRATE) (NO PREF. NAME) [Suspect]
     Indication: CATARACT OPERATION COMPLICATION
     Dosage: 1 TAB; TID; PO
     Route: 048
     Dates: start: 20100614, end: 20100621

REACTIONS (1)
  - CARDIAC ARREST [None]
